FAERS Safety Report 8553432 (Version 9)
Quarter: 2013Q3

REPORT INFORMATION
  Report Type: Report from Study
  Country: CA (occurrence: CA)
  Receive Date: 20120509
  Receipt Date: 20130708
  Transmission Date: 20140515
  Serious: Yes (Hospitalization, Other)
  Sender: FDA-Public Use
  Company Number: PHHY2012CA004188

PATIENT
  Age: 81 Year
  Sex: Male

DRUGS (3)
  1. SANDOSTATIN LAR [Suspect]
     Indication: NEUROENDOCRINE TUMOUR
     Dosage: 30 MG, EVERY 4 WEEKS
     Route: 030
     Dates: start: 20100826
  2. IRBESARTAN [Concomitant]
     Dosage: UNK UKN, UNK
  3. PRADAX [Concomitant]
     Dosage: UNK UKN, UNK

REACTIONS (19)
  - Chest pain [Unknown]
  - Hot flush [Unknown]
  - Atrial fibrillation [Unknown]
  - Pneumonia [Unknown]
  - Blood pressure systolic increased [Unknown]
  - Malaise [Unknown]
  - Injection site induration [Recovering/Resolving]
  - Injection site swelling [Recovering/Resolving]
  - Contusion [Unknown]
  - Skin discolouration [Unknown]
  - Injection site haemorrhage [Unknown]
  - Myalgia [Unknown]
  - Pain [Unknown]
  - Muscle tightness [Unknown]
  - Body temperature decreased [Recovering/Resolving]
  - Decreased appetite [Recovered/Resolved]
  - Heart rate irregular [Unknown]
  - Injection site pain [Unknown]
  - Abdominal pain [Recovering/Resolving]
